FAERS Safety Report 9630148 (Version 1)
Quarter: 2013Q4

REPORT INFORMATION
  Report Type: Report from Study
  Country: US (occurrence: US)
  Receive Date: 20131017
  Receipt Date: 20131017
  Transmission Date: 20140711
  Serious: Yes (Other)
  Sender: FDA-Public Use
  Company Number: PHEH2013US021582

PATIENT
  Sex: Male

DRUGS (1)
  1. TEGRETOL CR [Suspect]
     Dosage: UNK UKN, UNK

REACTIONS (2)
  - Fall [Unknown]
  - Joint injury [Unknown]
